FAERS Safety Report 23021226 (Version 1)
Quarter: 2023Q4

REPORT INFORMATION
  Report Type: Report from Study
  Country: AR (occurrence: AR)
  Receive Date: 20231003
  Receipt Date: 20231003
  Transmission Date: 20240110
  Serious: Yes (Hospitalization)
  Sender: FDA-Public Use
  Company Number: AR-ABBVIE-5431374

PATIENT
  Age: 24 Year
  Sex: Male

DRUGS (1)
  1. HUMIRA [Suspect]
     Active Substance: ADALIMUMAB
     Indication: Crohn^s disease
     Dosage: FORM STRENGTH: 80MG
     Route: 058
     Dates: start: 20150715

REACTIONS (2)
  - Intestinal obstruction [Recovered/Resolved]
  - Adverse food reaction [Unknown]

NARRATIVE: CASE EVENT DATE: 20230901
